FAERS Safety Report 9165453 (Version 1)
Quarter: 2013Q1

REPORT INFORMATION
  Report Type: Spontaneous
  Country: US (occurrence: US)
  Receive Date: 20130315
  Receipt Date: 20130315
  Transmission Date: 20140127
  Serious: Yes (Hospitalization, Other)
  Sender: FDA-Public Use
  Company Number: US-BAYER-2012-111244

PATIENT
  Age: 28 Year
  Sex: Female
  Weight: 88.44 kg

DRUGS (1)
  1. MIRENA [Suspect]
     Indication: CONTRACEPTION
     Dosage: 20 MCG/24HR, CONT
     Route: 015
     Dates: start: 201010, end: 201204

REACTIONS (7)
  - Endometriosis [Recovering/Resolving]
  - Pain [Recovering/Resolving]
  - Ovarian cyst [Not Recovered/Not Resolved]
  - Abdominal pain lower [Not Recovered/Not Resolved]
  - Scar [Recovering/Resolving]
  - Endometriosis [Recovering/Resolving]
  - Swelling [None]
